FAERS Safety Report 16540582 (Version 1)
Quarter: 2019Q3

REPORT INFORMATION
  Report Type: Spontaneous
  Country: US (occurrence: US)
  Receive Date: 20190707
  Receipt Date: 20190707
  Transmission Date: 20191004
  Serious: Yes (Other)
  Sender: FDA-Public Use
  Company Number: None

PATIENT
  Age: 52 Year
  Sex: Male
  Weight: 72 kg

DRUGS (2)
  1. EQUATE EYE DROPS [Suspect]
     Active Substance: TETRAHYDROZOLINE HYDROCHLORIDE
     Indication: DRY EYE
     Dates: start: 20190514, end: 20190518
  2. INJECTION INSULIN [Concomitant]

REACTIONS (1)
  - Eye infection [None]

NARRATIVE: CASE EVENT DATE: 20190515
